FAERS Safety Report 11029436 (Version 1)
Quarter: 2015Q2

REPORT INFORMATION
  Report Type: Spontaneous
  Country: FR (occurrence: FR)
  Receive Date: 20150415
  Receipt Date: 20150415
  Transmission Date: 20150821
  Serious: Yes (Life-Threatening, Hospitalization)
  Sender: FDA-Public Use
  Company Number: FR-AUROBINDO-AUR-APL-2015-03236

PATIENT
  Age: 85 Year
  Sex: Male

DRUGS (5)
  1. VALSARTAN/HYDROCHLOROTHIAZIDE ACTAVIS [Concomitant]
     Indication: PRODUCT USED FOR UNKNOWN INDICATION
     Dosage: 1 DF, ONCE A DAY
     Route: 065
  2. METFORMIN ARROW LAB FILM COATED TABLETS 1000MG [Suspect]
     Active Substance: METFORMIN HYDROCHLORIDE
     Indication: PRODUCT USED FOR UNKNOWN INDICATION
     Dosage: 3 G, DAILY
     Route: 048
     Dates: end: 20150129
  3. GLIBENCLAMIDE [Concomitant]
     Active Substance: GLYBURIDE
     Indication: PRODUCT USED FOR UNKNOWN INDICATION
     Dosage: UNK
     Route: 065
  4. ALLOPURINOL. [Concomitant]
     Active Substance: ALLOPURINOL
     Indication: PRODUCT USED FOR UNKNOWN INDICATION
     Dosage: UNK
     Route: 065
  5. AMOXICILLIN. [Suspect]
     Active Substance: AMOXICILLIN
     Indication: BRONCHITIS
     Dosage: 3 G, DAILY
     Route: 065
     Dates: start: 20150126

REACTIONS (16)
  - Speech disorder [Unknown]
  - Hyperkalaemia [Unknown]
  - Hypoglycaemia [Unknown]
  - Blood lactic acid [Recovered/Resolved]
  - Decreased appetite [Unknown]
  - Blood sodium decreased [None]
  - Dialysis [None]
  - Diarrhoea [Unknown]
  - Escherichia infection [None]
  - Pseudomonas infection [None]
  - Vomiting [Unknown]
  - Blood lactic acid increased [None]
  - Bronchopneumonia [None]
  - Acute kidney injury [Recovered/Resolved]
  - Anion gap increased [Unknown]
  - Blood pH decreased [None]

NARRATIVE: CASE EVENT DATE: 20150128
